FAERS Safety Report 6152964-6 (Version None)
Quarter: 2009Q2

REPORT INFORMATION
  Report Type: 
  Country: None (occurrence: None)
  Receive Date: 20090409
  Receipt Date: 20090402
  Transmission Date: 20091009
  Serious: Yes (Hospitalization)
  Sender: FDA-Public Use
  Company Number: TPA2009A00514

PATIENT
  Age: 56 Year
  Sex: Female

DRUGS (7)
  1. PIOGLITAZONE HCL [Suspect]
     Dosage: 1 IN 1 D, PER ORAL
     Route: 048
     Dates: start: 20090224, end: 20090319
  2. NITRO PASTE (GLYCERYL TRINITRATE) [Concomitant]
  3. AGGRENOX [Concomitant]
  4. PREDNISONE TAB [Concomitant]
  5. ARAVA [Concomitant]
  6. PRILOSEC [Concomitant]
  7. ENBREL [Concomitant]

REACTIONS (8)
  - DYSPNOEA [None]
  - HEADACHE [None]
  - MUSCULOSKELETAL PAIN [None]
  - NON-CARDIAC CHEST PAIN [None]
  - OEDEMA PERIPHERAL [None]
  - PAIN IN EXTREMITY [None]
  - PRODUCTIVE COUGH [None]
  - WEIGHT INCREASED [None]
